FAERS Safety Report 4350456-8 (Version None)
Quarter: 2004Q2

REPORT INFORMATION
  Report Type: 
  Country: None (occurrence: None)
  Receive Date: 20040427
  Receipt Date: 20040413
  Transmission Date: 20050107
  Serious: Yes (Death)
  Sender: FDA-Public Use
  Company Number: 04P-163-0257793-00

PATIENT
  Age: 72 Year
  Sex: Male
  Weight: 57 kg

DRUGS (6)
  1. GENGRAF [Suspect]
     Indication: RENAL TRANSPLANT
     Dosage: 200 MG, 2 IN 1 D, PER ORAL
     Route: 048
     Dates: start: 20030313, end: 20040302
  2. PREDNISONE [Concomitant]
  3. MYCOPHENOLATE MOFETIL [Concomitant]
  4. . [Concomitant]
  5. ATENOLOL [Concomitant]
  6. RISEDRONATE SODIUM [Concomitant]

REACTIONS (4)
  - CIRCULATORY COLLAPSE [None]
  - PLEURAL MESOTHELIOMA MALIGNANT [None]
  - RESPIRATORY DISTRESS [None]
  - SUDDEN DEATH [None]
